FAERS Safety Report 7648528-5 (Version None)
Quarter: 2011Q3

REPORT INFORMATION
  Report Type: 
  Country: None (occurrence: None)
  Receive Date: 20110801
  Receipt Date: 20110727
  Transmission Date: 20111222
  Serious: Yes (Death, Other)
  Sender: FDA-Public Use
  Company Number: US-PFIZER INC-2011100152

PATIENT
  Sex: Male

DRUGS (1)
  1. CHANTIX [Suspect]
     Indication: SMOKING CESSATION THERAPY
     Dosage: UNK
     Dates: start: 20071016

REACTIONS (5)
  - HOMICIDE [None]
  - COMPLETED SUICIDE [None]
  - NIGHTMARE [None]
  - AGGRESSION [None]
  - ANGER [None]
